FAERS Safety Report 4299189-7 (Version None)
Quarter: 2004Q1

REPORT INFORMATION
  Report Type: 
  Country: None (occurrence: None)
  Receive Date: 20040217
  Receipt Date: 20030318
  Transmission Date: 20041129
  Serious: Yes (Congenital Anomaly)
  Sender: FDA-Public Use
  Company Number: 2003-05197

PATIENT
  Age: 0 Day
  Sex: Male
  Weight: 3.1 kg

DRUGS (5)
  1. VIREAD [Suspect]
     Indication: HIV INFECTION
     Dosage: 300 MG QD PO
     Route: 048
     Dates: start: 20021201, end: 20030115
  2. DIDANOSINE [Suspect]
     Indication: HIV INFECTION
     Dosage: 400 MG QD PO
     Route: 048
     Dates: start: 20020214, end: 20030115
  3. STAVUDINE [Suspect]
     Indication: HIV INFECTION
     Dosage: 80 MG QD PO
     Route: 048
     Dates: start: 20020214, end: 20030115
  4. KALETRA [Suspect]
     Indication: HIV INFECTION
     Dosage: 6 EACH QD PO
     Route: 048
     Dates: start: 20020214, end: 20030115
  5. ZIDOVUDINE [Suspect]
     Indication: HIV INFECTION
     Dates: start: 20030114, end: 20030115

REACTIONS (2)
  - CONGENITAL JOINT MALFORMATION [None]
  - MATERNAL DRUGS AFFECTING FOETUS [None]
